FAERS Safety Report 5374474-6 (Version None)
Quarter: 2007Q2

REPORT INFORMATION
  Report Type: 
  Country: None (occurrence: None)
  Receive Date: 20070629
  Receipt Date: 20070619
  Transmission Date: 20071010
  Serious: Yes (Death)
  Sender: FDA-Public Use
  Company Number: JP-NOVOPROD-261613

PATIENT
  Age: 88 Year
  Sex: Male
  Weight: 45 kg

DRUGS (18)
  1. NOVOSEVEN [Suspect]
     Indication: HAEMORRHAGE
     Dosage: 4.8 MG, BID
     Route: 042
     Dates: start: 20070307, end: 20070307
  2. NOVOSEVEN [Suspect]
     Dosage: 4.8 MG, QD
     Route: 042
     Dates: start: 20070308, end: 20070308
  3. HUMAN RED BLOOD CELLS [Concomitant]
  4. TRANSAMIN [Concomitant]
     Dosage: 1 G, UNK
     Route: 042
     Dates: start: 20070307, end: 20070312
  5. PREDNISOLONE [Concomitant]
     Dosage: 45 MG, UNK
     Route: 048
     Dates: start: 20070307, end: 20070312
  6. BACTRIM [Concomitant]
     Dosage: .5 TAB, QD
     Route: 048
     Dates: start: 20070307, end: 20070312
  7. FLUCONAMERCK KYOWA [Concomitant]
     Dosage: 100 MG, QD
     Route: 048
     Dates: start: 20070307, end: 20070312
  8. BLADDERON [Concomitant]
     Dosage: 400 MG, QD
     Route: 048
     Dates: start: 20070307, end: 20070312
  9. ULCERMIN [Concomitant]
     Dosage: 3 G, QD
     Route: 048
     Dates: start: 20070307, end: 20070312
  10. SERMION                            /00396401/ [Concomitant]
     Dosage: 15 MG, QD
     Route: 048
     Dates: start: 20070307, end: 20070312
  11. LITIOMAL [Concomitant]
     Dosage: 400 MG, QD
     Route: 048
     Dates: start: 20070307, end: 20070312
  12. SERENACE [Concomitant]
     Dosage: 8 MG, QD
     Route: 048
     Dates: start: 20070307, end: 20070312
  13. TASMOLIN                           /00079502/ [Concomitant]
     Dosage: 6 MG, QD
     Route: 048
     Dates: start: 20070307, end: 20070312
  14. ROHYPNOL [Concomitant]
     Dosage: .5 MG, QD
     Route: 048
     Dates: start: 20070307, end: 20070312
  15. LULLAN [Concomitant]
     Dosage: 4 MG, QD
     Route: 048
     Dates: start: 20070307, end: 20070312
  16. GRAMALIL [Concomitant]
     Dosage: 30 MG, QD
     Route: 048
     Dates: start: 20070307, end: 20070312
  17. NELUROLEN [Concomitant]
     Dosage: 3 MG, QD
     Route: 048
     Dates: start: 20070307, end: 20070312
  18. BROVARIN [Concomitant]
     Dosage: .4 MG, QD
     Route: 048
     Dates: start: 20070307, end: 20070312

REACTIONS (1)
  - SHOCK HAEMORRHAGIC [None]
